FAERS Safety Report 14757813 (Version 3)
Quarter: 2018Q2

REPORT INFORMATION
  Report Type: Spontaneous
  Country: IT (occurrence: IT)
  Receive Date: 20180413
  Receipt Date: 20180508
  Transmission Date: 20180711
  Serious: Yes (Disabling)
  Sender: FDA-Public Use
  Company Number: IT-009507513-1804ITA002941

PATIENT
  Age: 52 Year
  Sex: Female
  Weight: 85 kg

DRUGS (5)
  1. CIPROFLOXACIN LACTATE [Suspect]
     Active Substance: CIPROFLOXACIN LACTATE
     Indication: ANTIBIOTIC PROPHYLAXIS
     Dosage: IN TOTAL
     Route: 042
     Dates: start: 20171005, end: 20171005
  2. ROCURONIUM BROMIDE. [Suspect]
     Active Substance: ROCURONIUM BROMIDE
     Indication: GENERAL ANAESTHESIA
     Dosage: DOSAGE FORM: UNSPECIFIED ; IN TOTAL
     Route: 042
     Dates: start: 20171005, end: 20171005
  3. FENTANEST [Suspect]
     Active Substance: FENTANYL CITRATE
     Indication: GENERAL ANAESTHESIA
     Dosage: DOSAGE FORM: SOLUTION ; IN TOTAL
     Route: 042
     Dates: start: 20171005, end: 20171005
  4. THERAPY UNSPECIFIED [Suspect]
     Active Substance: UNSPECIFIED INGREDIENT
     Dosage: UNK
  5. PROPOFOL FRESENIUS KABI [Suspect]
     Active Substance: PROPOFOL
     Indication: GENERAL ANAESTHESIA
     Dosage: DOSAGE FORM: EMULSION ; IN TOTAL
     Route: 042
     Dates: start: 20171005, end: 20171005

REACTIONS (4)
  - Cardiac arrest [Not Recovered/Not Resolved]
  - Hypotension [Not Recovered/Not Resolved]
  - Capnogram abnormal [Not Recovered/Not Resolved]
  - Oxygen saturation decreased [Not Recovered/Not Resolved]

NARRATIVE: CASE EVENT DATE: 20171005
